FAERS Safety Report 8560196-7 (Version None)
Quarter: 2012Q3

REPORT INFORMATION
  Report Type: 
  Country: None (occurrence: None)
  Receive Date: 20120802
  Receipt Date: 20120723
  Transmission Date: 20120928
  Serious: Yes (Disabling)
  Sender: FDA-Public Use
  Company Number: FR-009507513-1207FRA008810

PATIENT

DRUGS (1)
  1. CELESTONE [Suspect]
     Indication: PRODUCT USED FOR UNKNOWN INDICATION
     Dosage: UNK
     Dates: start: 20090301, end: 20090101

REACTIONS (1)
  - SICKLE CELL ANAEMIA WITH CRISIS [None]
